FAERS Safety Report 7071197-2 (Version None)
Quarter: 2010Q4

REPORT INFORMATION
  Report Type: 
  Country: None (occurrence: None)
  Receive Date: 20101029
  Receipt Date: 20101021
  Transmission Date: 20110411
  Serious: Yes (Hospitalization)
  Sender: FDA-Public Use
  Company Number: IT-WYE-H18297210

PATIENT
  Sex: Male

DRUGS (6)
  1. PANTOPAN [Suspect]
     Route: 048
     Dates: start: 20100903, end: 20100917
  2. TERAZOSIN HYDROCHLORIDE [Concomitant]
     Dosage: 2 MG (FREQUENCY UNKNOWN)
     Route: 065
     Dates: start: 20060101
  3. ALLOPURINOL [Concomitant]
     Dosage: 300 MG (FREQUNCY UNKNOWN)
     Route: 065
     Dates: start: 20060101
  4. KETOPROFEN [Suspect]
     Route: 065
     Dates: start: 20100903, end: 20100917
  5. PLAQUENIL [Suspect]
     Route: 048
     Dates: start: 20100903, end: 20100917
  6. METFORMIN [Concomitant]
     Dosage: 500 MG (FREQUENCY UNKNOWN)
     Route: 065
     Dates: start: 20060101

REACTIONS (1)
  - ACUTE GENERALISED EXANTHEMATOUS PUSTULOSIS [None]
